FAERS Safety Report 11227670 (Version 1)
Quarter: 2015Q2

REPORT INFORMATION
  Report Type: Spontaneous
  Country: US (occurrence: None)
  Receive Date: 20150626
  Receipt Date: 20150626
  Transmission Date: 20150821
  Serious: No
  Sender: FDA-Public Use
  Company Number: 15-00696

PATIENT
  Age: 64 Year
  Sex: Male
  Weight: 74.39 kg

DRUGS (3)
  1. RACEPINEPHRINE [Suspect]
     Active Substance: RACEPINEPHRINE
  2. ANTIBIOTIC [Concomitant]
     Active Substance: UNSPECIFIED INGREDIENT
  3. ASTHMANEFRIN [Suspect]
     Active Substance: RACEPINEPHRINE HYDROCHLORIDE
     Indication: ASTHMA
     Dosage: 1 VIAL PRN 054
     Dates: start: 2014, end: 2015

REACTIONS (3)
  - Lip swelling [None]
  - Oropharyngeal pain [None]
  - Dysphagia [None]

NARRATIVE: CASE EVENT DATE: 20150620
